FAERS Safety Report 8554278-3 (Version None)
Quarter: 2012Q3

REPORT INFORMATION
  Report Type: 
  Country: None (occurrence: None)
  Receive Date: 20120731
  Receipt Date: 20120720
  Transmission Date: 20120928
  Serious: Yes (Other)
  Sender: FDA-Public Use
  Company Number: IT-CELGENEUS-083-21660-11050358

PATIENT
  Sex: Male

DRUGS (8)
  1. KYTRIL [Concomitant]
     Route: 065
     Dates: start: 20110119, end: 20110314
  2. LASIX [Concomitant]
     Route: 065
     Dates: start: 20110119, end: 20110314
  3. CISPLATIN [Suspect]
     Dosage: 5 MILLIGRAM/SQ. METER
     Route: 041
     Dates: start: 20110119, end: 20110314
  4. DECADRON [Concomitant]
     Route: 065
     Dates: start: 20110119, end: 20110314
  5. ZANTAC [Concomitant]
     Route: 065
     Dates: start: 20110119, end: 20110314
  6. METOCLOPRAMIDE HYDROCHLORIDE [Concomitant]
     Route: 065
     Dates: start: 20110119, end: 20110314
  7. ABRAXANE [Suspect]
     Dosage: 6.4286 MILLIGRAM/SQ. METER
     Route: 041
     Dates: start: 20110119, end: 20110314
  8. TRIMETON [Concomitant]
     Route: 065
     Dates: start: 20110119, end: 20110314

REACTIONS (1)
  - OTOTOXICITY [None]
